FAERS Safety Report 4995548-5 (Version None)
Quarter: 2006Q2

REPORT INFORMATION
  Report Type: 
  Country: None (occurrence: None)
  Receive Date: 20060508
  Receipt Date: 20030117
  Transmission Date: 20061013
  Serious: Yes (Hospitalization)
  Sender: FDA-Public Use
  Company Number: US-ROCHE-329897

PATIENT
  Age: 30 Year
  Sex: Female
  Weight: 104.3 kg

DRUGS (3)
  1. LARIAM [Suspect]
     Indication: PROPHYLAXIS
     Dosage: TAKEN TWO DOSES IN TOTAL.
     Route: 048
     Dates: start: 20021224, end: 20021231
  2. TRAZODONE HCL [Concomitant]
     Route: 048
  3. PROZAC [Concomitant]
     Route: 048

REACTIONS (20)
  - ANXIETY [None]
  - CHEST PAIN [None]
  - CLAUSTROPHOBIA [None]
  - DEPRESSION [None]
  - DYSTHYMIC DISORDER [None]
  - FATIGUE [None]
  - FEAR [None]
  - GASTROINTESTINAL DISORDER [None]
  - HEADACHE [None]
  - HEART RATE INCREASED [None]
  - INSOMNIA [None]
  - INTENTIONAL SELF-INJURY [None]
  - MENTAL IMPAIRMENT [None]
  - MOOD SWINGS [None]
  - NIGHTMARE [None]
  - OVERDOSE [None]
  - PANIC ATTACK [None]
  - PARAESTHESIA [None]
  - RESPIRATORY DISORDER [None]
  - SUICIDE ATTEMPT [None]
